FAERS Safety Report 8839262 (Version 1)
Quarter: 2012Q4

REPORT INFORMATION
  Report Type: 
  Country: US (occurrence: US)
  Receive Date: 20121015
  Receipt Date: 20121015
  Transmission Date: 20130627
  Serious: Yes (Other)
  Sender: FDA-Public Use
  Company Number: US-JNJFOC-20121003503

PATIENT
  Age: 81 Year
  Sex: Female

DRUGS (3)
  1. REMICADE [Suspect]
     Indication: PSORIATIC ARTHROPATHY
     Route: 042
  2. REMICADE [Suspect]
     Indication: RHEUMATOID ARTHRITIS
     Route: 042
  3. WARFARIN [Suspect]
     Indication: ATRIAL FIBRILLATION
     Route: 048

REACTIONS (5)
  - Prothrombin time ratio decreased [Recovered/Resolved]
  - Mean cell volume abnormal [Not Recovered/Not Resolved]
  - Mean cell haemoglobin increased [Not Recovered/Not Resolved]
  - Red cell distribution width increased [Not Recovered/Not Resolved]
  - Platelet count decreased [Not Recovered/Not Resolved]
